FAERS Safety Report 7821995-X (Version None)
Quarter: 2011Q4

REPORT INFORMATION
  Report Type: 
  Country: None (occurrence: None)
  Receive Date: 20111018
  Receipt Date: 20110106
  Transmission Date: 20120403
  Serious: No
  Sender: FDA-Public Use
  Company Number: US-ASTRAZENECA-2011SE01131

PATIENT
  Sex: Female

DRUGS (2)
  1. SYMBICORT [Suspect]
     Indication: COUGH
     Dosage: 160 MCG TWO TIMES A DAY
     Route: 055
     Dates: start: 20101101, end: 20101101
  2. SYMBICORT [Suspect]
     Indication: WHEEZING
     Dosage: 160 MCG TWO TIMES A DAY
     Route: 055
     Dates: start: 20101101, end: 20101101

REACTIONS (5)
  - DRUG DOSE OMISSION [None]
  - WHEEZING [None]
  - MATERNAL EXPOSURE DURING PREGNANCY [None]
  - COUGH [None]
  - RHINORRHOEA [None]
